FAERS Safety Report 9465249 (Version 2)
Quarter: 2013Q3

REPORT INFORMATION
  Report Type: Spontaneous
  Country: US (occurrence: US)
  Receive Date: 20130819
  Receipt Date: 20130821
  Transmission Date: 20140515
  Serious: Yes (Hospitalization)
  Sender: FDA-Public Use
  Company Number: US-PFIZER INC-2013235514

PATIENT
  Age: 36 Year
  Sex: Female

DRUGS (4)
  1. CARBOPLATIN [Suspect]
     Indication: SEROUS CYSTADENOCARCINOMA OVARY
     Dosage: (AREA UNDER THE CURVE56) GIVEN DAY 1
     Route: 033
  2. CARBOPLATIN [Suspect]
     Indication: CHEMOTHERAPY
  3. PACLITAXEL [Suspect]
     Indication: SEROUS CYSTADENOCARCINOMA OVARY
     Dosage: (60 MG/M2) GIVEN DAYS 1, 8, AND 15 ON A 28-DAY CYCLE
     Route: 042
  4. PACLITAXEL [Suspect]
     Indication: CHEMOTHERAPY

REACTIONS (5)
  - Pre-eclampsia [Recovered/Resolved]
  - Nausea [Recovered/Resolved]
  - Vomiting [Recovered/Resolved]
  - Anaemia [Recovered/Resolved]
  - Thrombocytopenia [Recovered/Resolved]
